FAERS Safety Report 17125416 (Version 1)
Quarter: 2019Q4

REPORT INFORMATION
  Report Type: Report from Study
  Country: IT (occurrence: IT)
  Receive Date: 20191207
  Receipt Date: 20191207
  Transmission Date: 20200122
  Serious: Yes (Hospitalization)
  Sender: FDA-Public Use
  Company Number: IT-ACCORD-163837

PATIENT
  Age: 88 Year
  Sex: Male

DRUGS (9)
  1. MADOPAR [Concomitant]
     Active Substance: BENSERAZIDE HYDROCHLORIDE\LEVODOPA
     Dosage: STRENGTH: 100 MG + 25 MG
     Route: 048
  2. ATORVASTATIN [Concomitant]
     Active Substance: ATORVASTATIN
     Route: 048
  3. JUMEX [Concomitant]
     Active Substance: SELEGILINE HYDROCHLORIDE
     Dosage: STRENGTH: 5 MG
     Route: 048
  4. CLOPIDOGREL [Suspect]
     Active Substance: CLOPIDOGREL BISULFATE
     Indication: PROPHYLAXIS
     Route: 048
     Dates: start: 20190401, end: 20190510
  5. CARDIOASPIRIN [Interacting]
     Active Substance: ASPIRIN
     Indication: PROPHYLAXIS
     Route: 048
     Dates: start: 20070101, end: 20190510
  6. TAMSULOSIN [Concomitant]
     Active Substance: TAMSULOSIN
     Route: 048
  7. FUROSEMIDE. [Concomitant]
     Active Substance: FUROSEMIDE
     Route: 048
  8. OMEPRAZOLE. [Concomitant]
     Active Substance: OMEPRAZOLE
     Route: 048
  9. BISOPROLOLO EMIFUMARATO [Concomitant]
     Active Substance: BISOPROLOL FUMARATE
     Route: 048

REACTIONS (4)
  - Hemiparesis [Recovering/Resolving]
  - Drug interaction [Unknown]
  - Cerebral haemorrhage [Recovering/Resolving]
  - Fall [Unknown]

NARRATIVE: CASE EVENT DATE: 20190510
